FAERS Safety Report 7534616-0 (Version None)
Quarter: 2011Q2

REPORT INFORMATION
  Report Type: 
  Country: None (occurrence: None)
  Receive Date: 20110609
  Receipt Date: 20101210
  Transmission Date: 20111010
  Serious: Yes (Other)
  Sender: FDA-Public Use
  Company Number: PHBS2009US01057

PATIENT
  Sex: Male
  Weight: 80.9 kg

DRUGS (20)
  1. ALLOPURINOL [Concomitant]
     Dosage: 100 MG DAILY
     Route: 048
  2. FOLIC ACID [Concomitant]
  3. LISINOPRIL [Concomitant]
     Dosage: 2.5 MG, DAILY
     Route: 048
  4. SIMETHICONE [Concomitant]
  5. EXJADE [Suspect]
     Dosage: 750 MG, DAILY
     Dates: end: 20090622
  6. DEFEROXAMINE MESYLATE [Concomitant]
     Dosage: 02 GM SQ OVER 08 HRS EACH NIGHT
     Route: 042
  7. ASPIRIN [Concomitant]
     Dosage: 324 MG DAILY
     Route: 048
  8. NADOLOL [Concomitant]
     Dosage: 40 MG, DAILY
  9. MULTI-VITAMINS [Concomitant]
  10. SIMVASTATIN [Concomitant]
  11. RED BLOOD CELLS, CONCENTRATED [Concomitant]
  12. FUROSEMIDE [Concomitant]
     Dosage: 40 MG, BID
     Route: 048
  13. OXYGEN [Concomitant]
  14. DIURETICS [Concomitant]
  15. CARVEDILOL [Concomitant]
     Dosage: 6.25 MG, BID
     Route: 048
  16. TAMSULOSIN HCL [Concomitant]
     Dosage: 0.4 MG, DAILY
     Route: 048
  17. EXJADE [Suspect]
     Indication: HAEMOSIDEROSIS
     Dosage: 1625 MG, QD
     Route: 048
     Dates: start: 20090226, end: 20090316
  18. EXJADE [Suspect]
     Dosage: 500 MG, DAILY
     Route: 048
  19. METOLAZONE [Concomitant]
     Indication: WEIGHT INCREASED
  20. RESTACT [Concomitant]
     Indication: TRANSFUSION REACTION

REACTIONS (22)
  - OEDEMA [None]
  - CARDIAC MURMUR [None]
  - CHEST DISCOMFORT [None]
  - HALLUCINATION [None]
  - AORTIC STENOSIS [None]
  - CONJUNCTIVITIS [None]
  - COUGH [None]
  - LEFT VENTRICULAR HYPERTROPHY [None]
  - DYSPNOEA EXERTIONAL [None]
  - DIARRHOEA [None]
  - RETCHING [None]
  - VENOUS PRESSURE JUGULAR ABNORMAL [None]
  - RENAL IMPAIRMENT [None]
  - EJECTION FRACTION DECREASED [None]
  - PALLOR [None]
  - OEDEMA PERIPHERAL [None]
  - AORTIC VALVE INCOMPETENCE [None]
  - RIGHT VENTRICULAR SYSTOLIC PRESSURE INCREASED [None]
  - RALES [None]
  - WEIGHT INCREASED [None]
  - URINARY INCONTINENCE [None]
  - MITRAL VALVE INCOMPETENCE [None]
